FAERS Safety Report 9924313 (Version 1)
Quarter: 2014Q1

REPORT INFORMATION
  Report Type: Spontaneous
  Country: US (occurrence: US)
  Receive Date: 20140226
  Receipt Date: 20140226
  Transmission Date: 20141002
  Serious: No
  Sender: FDA-Public Use
  Company Number: US-009507513-1402USA010253

PATIENT
  Age: 61 Year
  Sex: Female
  Weight: 81.63 kg

DRUGS (2)
  1. VYTORIN [Suspect]
     Indication: BLOOD CHOLESTEROL
     Dosage: UNK
     Route: 048
  2. SYNTHYROID [Concomitant]
     Indication: HYPOTHYROIDISM
     Dosage: 0.112 MICROGRAM, UNK

REACTIONS (1)
  - Drug ineffective [Unknown]
